FAERS Safety Report 8828674 (Version 2)
Quarter: 2013Q2

REPORT INFORMATION
  Report Type: Spontaneous
  Country: JP (occurrence: JP)
  Receive Date: 20121005
  Receipt Date: 20130501
  Transmission Date: 20140414
  Serious: Yes (Hospitalization, Disabling, Other)
  Sender: FDA-Public Use
  Company Number: JP-ASTELLAS-2012US009876

PATIENT
  Age: 65 Year
  Sex: Female
  Weight: 53 kg

DRUGS (9)
  1. TARCEVA [Suspect]
     Indication: LUNG ADENOCARCINOMA
     Dosage: 150 MG, UID/QD
     Route: 048
     Dates: start: 20120508, end: 20120531
  2. TARCEVA [Suspect]
     Dosage: 100 MG, UID/QD
     Route: 048
     Dates: start: 20120601, end: 20120622
  3. NORVASC [Concomitant]
     Indication: HYPERTENSION
     Dosage: 5 MG, UID/QD
     Route: 048
  4. CRESTOR [Concomitant]
     Indication: HYPERLIPIDAEMIA
     Dosage: 2.5 MG, UID/QD
     Route: 048
  5. GASTER D [Concomitant]
     Indication: PRODUCT USED FOR UNKNOWN INDICATION
     Dosage: 20 MG, UID/QD
     Route: 048
  6. ISOBIDE                            /00586301/ [Concomitant]
     Indication: BRAIN OEDEMA
     Dosage: 30 ML, BID
     Route: 048
     Dates: start: 20120427
  7. RINDERON                           /00309501/ [Concomitant]
     Indication: BRAIN OEDEMA
     Dosage: 6 MG, UID/QD
     Route: 042
     Dates: start: 20120508, end: 20120519
  8. RINDERON                           /00309501/ [Concomitant]
     Dosage: 4 MG, UID/QD
     Route: 048
     Dates: start: 20120520, end: 20120617
  9. RINDERON                           /00309501/ [Concomitant]
     Dosage: 3 MG, UID/QD
     Route: 048
     Dates: start: 20120618

REACTIONS (6)
  - Respiratory disorder [Recovering/Resolving]
  - Blood lactate dehydrogenase increased [Unknown]
  - Large intestine perforation [Recovered/Resolved with Sequelae]
  - Blood bilirubin increased [Unknown]
  - Diarrhoea [Unknown]
  - Rash [Unknown]
